FAERS Safety Report 7534444-6 (Version None)
Quarter: 2011Q2

REPORT INFORMATION
  Report Type: 
  Country: None (occurrence: None)
  Receive Date: 20110608
  Receipt Date: 20110531
  Transmission Date: 20111010
  Serious: Yes (Other)
  Sender: FDA-Public Use
  Company Number: AR-GILEAD-2011-0038335

PATIENT
  Age: 39 Year
  Sex: Female

DRUGS (3)
  1. LEVONOGESTREL [Concomitant]
  2. ETINILESTRADIOL [Concomitant]
  3. AMBRISENTAN [Suspect]
     Indication: PULMONARY HYPERTENSION
     Route: 048
     Dates: start: 20050216

REACTIONS (1)
  - ABORTION SPONTANEOUS [None]
